FAERS Safety Report 17620939 (Version 1)
Quarter: 2020Q2

REPORT INFORMATION
  Report Type: Other
  Country: CA (occurrence: CA)
  Receive Date: 20200403
  Receipt Date: 20200403
  Transmission Date: 20200713
  Serious: Yes (Other)
  Sender: FDA-Public Use
  Company Number: CA-GLENMARK PHARMACEUTICALS-2020GMK046985

PATIENT

DRUGS (3)
  1. GABAPENTIN. [Suspect]
     Active Substance: GABAPENTIN
     Indication: PRODUCT USED FOR UNKNOWN INDICATION
     Dosage: UNK
     Route: 065
  2. CERTOLIZUMAB PEGOL [Suspect]
     Active Substance: CERTOLIZUMAB PEGOL
     Indication: RHEUMATOID ARTHRITIS
     Dosage: 400 MILLIGRAM
     Route: 058
  3. CETIRIZINE HYDROCHLORIDE. [Concomitant]
     Active Substance: CETIRIZINE HYDROCHLORIDE
     Indication: RASH
     Dosage: UNK
     Route: 065

REACTIONS (7)
  - Seizure [Recovered/Resolved]
  - Anxiety [Recovered/Resolved]
  - Rheumatoid arthritis [Recovered/Resolved]
  - Vitreous floaters [Recovered/Resolved]
  - Sensory loss [Recovered/Resolved]
  - Joint effusion [Recovered/Resolved]
  - Rash [Recovered/Resolved]
